FAERS Safety Report 4538034-9 (Version None)
Quarter: 2004Q4

REPORT INFORMATION
  Report Type: 
  Country: None (occurrence: None)
  Receive Date: 20041223
  Receipt Date: 20041223
  Transmission Date: 20050328
  Serious: Yes (Life-Threatening, Disabling, Other)
  Sender: FDA-Public Use
  Company Number: None

PATIENT
  Age: 49 Year
  Weight: 81.6475 kg

DRUGS (1)
  1. LIPITOR [Suspect]
     Dosage: 20 MG A  DAY ORAL
     Route: 048
     Dates: start: 19950301, end: 20000601

REACTIONS (3)
  - COORDINATION ABNORMAL [None]
  - DYSARTHRIA [None]
  - ERECTILE DYSFUNCTION [None]
